FAERS Safety Report 9510982 (Version 1)
Quarter: 2013Q1

REPORT INFORMATION
  Report Type: Spontaneous
  Country: US (occurrence: None)
  Receive Date: 20130305
  Receipt Date: 20130305
  Transmission Date: 20140127
  Serious: Yes (Hospitalization)
  Sender: FDA-Public Use
  Company Number: 163-21880-12021295

PATIENT
  Age: 61 Year
  Sex: Female

DRUGS (4)
  1. REVLIMID [Suspect]
     Indication: PLASMA CELL MYELOMA
     Dosage: DAILY X 21 DAYS
     Route: 048
     Dates: start: 20111102
  2. DIOVAN (VALSARTAN) (UNKNOWN) [Concomitant]
  3. AMLODIPINE BESYLATE (AMLODIPINE BESILATE) (UNKNOWN) [Concomitant]
  4. GERITOL COMPLETE (GERITOL COMPLETE) (UNKNOWN) [Concomitant]

REACTIONS (2)
  - Hypertension [None]
  - Renal failure [None]
